FAERS Safety Report 5872988-3 (Version None)
Quarter: 2008Q3

REPORT INFORMATION
  Report Type: 
  Country: None (occurrence: None)
  Receive Date: 20080905
  Receipt Date: 20080825
  Transmission Date: 20090109
  Serious: Yes (Other)
  Sender: FDA-Public Use
  Company Number: AU-PFIZER INC-2008072145

PATIENT
  Age: 47 Year
  Sex: Male

DRUGS (5)
  1. CHANTIX [Suspect]
     Indication: SMOKING CESSATION THERAPY
     Route: 048
     Dates: start: 20080620, end: 20080624
  2. AMITRIPTYLINE HCL [Concomitant]
  3. LIPITOR [Concomitant]
  4. EPILIM [Concomitant]
  5. ACIMAX [Concomitant]

REACTIONS (2)
  - ACUTE PSYCHOSIS [None]
  - VIOLENCE-RELATED SYMPTOM [None]
